FAERS Safety Report 4868470-2 (Version None)
Quarter: 2005Q4

REPORT INFORMATION
  Report Type: 
  Country: None (occurrence: None)
  Receive Date: 20051223
  Receipt Date: 20051214
  Transmission Date: 20060501
  Serious: Yes (Other)
  Sender: FDA-Public Use
  Company Number: 2005169189

PATIENT
  Sex: Female
  Weight: 62.5964 kg

DRUGS (6)
  1. LIPITOR [Suspect]
     Indication: BLOOD CHOLESTEROL INCREASED
     Dosage: 10 MG (10 MG, 1 IN 1 D), ORAL
     Route: 048
     Dates: end: 20051001
  2. TIAZAC [Concomitant]
  3. COUMADIN [Concomitant]
  4. LASIX [Concomitant]
  5. NEXIUM [Concomitant]
  6. LISINOPRIL [Concomitant]

REACTIONS (3)
  - BLOOD CREATINE PHOSPHOKINASE INCREASED [None]
  - HYPOTONIA [None]
  - MUSCULOSKELETAL DISCOMFORT [None]
